FAERS Safety Report 6895830-0 (Version None)
Quarter: 2010Q3

REPORT INFORMATION
  Report Type: 
  Country: None (occurrence: None)
  Receive Date: 20100802
  Receipt Date: 20100722
  Transmission Date: 20110219
  Serious: Yes (Hospitalization)
  Sender: FDA-Public Use
  Company Number: FR-PFIZER INC-2010091579

PATIENT
  Age: 76 Year
  Sex: Male

DRUGS (10)
  1. TRIFLUCAN [Suspect]
     Indication: ORAL FUNGAL INFECTION
     Dosage: 2 DF, 1X/DAY
     Route: 048
     Dates: start: 20100623, end: 20100707
  2. OFLOCET [Suspect]
     Indication: LUNG INFECTION
     Dosage: 2 DF, 1X/DAY
     Route: 048
     Dates: end: 20100624
  3. AUGMENTIN '125' [Suspect]
     Indication: LUNG INFECTION
     Dosage: 3 DF, 1X/DAY
     Route: 048
     Dates: end: 20100624
  4. TIAPRIDE [Concomitant]
     Dosage: UNK
  5. ARIXTRA [Concomitant]
     Dosage: 1 DF, 1X/DAY
     Route: 058
  6. PANTOPRAZOLE SODIUM [Concomitant]
     Dosage: 20 MG, 1X/DAY
     Route: 048
  7. IMOVANE [Concomitant]
     Route: 048
  8. SPECIAFOLDINE [Concomitant]
     Dosage: UNK
  9. TARDYFERON [Concomitant]
     Route: 048
  10. ACETAMINOPHEN [Concomitant]
     Route: 048

REACTIONS (1)
  - TENDONITIS [None]
